FAERS Safety Report 21340768 (Version 1)
Quarter: 2022Q3

REPORT INFORMATION
  Report Type: Report from Study
  Country: ZA (occurrence: ZA)
  Receive Date: 20220916
  Receipt Date: 20220916
  Transmission Date: 20221026
  Serious: Yes (Other)
  Sender: FDA-Public Use
  Company Number: ZA-NOVARTISPH-NVSC2022ZA123128

PATIENT
  Sex: Female

DRUGS (3)
  1. AZATHIOPRINE [Suspect]
     Active Substance: AZATHIOPRINE
     Indication: Ankylosing spondylitis
     Dosage: UNK
     Route: 065
  2. COSENTYX [Suspect]
     Active Substance: SECUKINUMAB
     Indication: Ankylosing spondylitis
     Dosage: 150 MG, QW (AUTO-INJECTOR)
     Route: 058
     Dates: start: 20220428
  3. CYCLOPHOSPHAMIDE [Suspect]
     Active Substance: CYCLOPHOSPHAMIDE
     Indication: Product used for unknown indication
     Dosage: UNK
     Route: 065

REACTIONS (13)
  - Cellulitis [Unknown]
  - Sacroiliitis [Unknown]
  - Arthritis [Unknown]
  - Muscular weakness [Unknown]
  - Headache [Unknown]
  - Primary headache associated with sexual activity [Unknown]
  - Attention deficit hyperactivity disorder [Unknown]
  - Memory impairment [Unknown]
  - Synovitis [Recovered/Resolved]
  - Spinal pain [Unknown]
  - Fibromyalgia [Unknown]
  - Chest discomfort [Unknown]
  - Product use in unapproved indication [Unknown]
